FAERS Safety Report 21104618 (Version 1)
Quarter: 2022Q3

REPORT INFORMATION
  Report Type: Spontaneous
  Country: US (occurrence: None)
  Receive Date: 20220719
  Receipt Date: 20220719
  Transmission Date: 20221027
  Serious: Yes (Disabling)
  Sender: FDA-Public Use
  Company Number: None

PATIENT
  Age: 95 Year
  Sex: Male
  Weight: 73.5 kg

DRUGS (1)
  1. TRANEXAMIC ACID [Suspect]
     Active Substance: TRANEXAMIC ACID
     Indication: Thrombosis prophylaxis
     Dosage: OTHER FREQUENCY : X 3 DOSES;?
     Route: 042
     Dates: start: 20220716, end: 20220717

REACTIONS (3)
  - Ischaemic stroke [None]
  - Post procedural complication [None]
  - Femur fracture [None]

NARRATIVE: CASE EVENT DATE: 20220717
